FAERS Safety Report 19521086 (Version 1)
Quarter: 2021Q3

REPORT INFORMATION
  Report Type: Spontaneous
  Country: FR (occurrence: FR)
  Receive Date: 20210712
  Receipt Date: 20210712
  Transmission Date: 20211014
  Serious: Yes (Other)
  Sender: FDA-Public Use
  Company Number: FR-MYLANLABS-2021M1041414

PATIENT
  Age: 63 Year
  Sex: Male
  Weight: 72 kg

DRUGS (3)
  1. RIMACTAN                           /00146902/ [Suspect]
     Active Substance: RIFAMPIN SODIUM
     Indication: OSTEITIS
     Dosage: 1200 MILLIGRAM, QD
     Route: 048
     Dates: start: 20201027, end: 20201123
  2. CLINDAMYCINE MYLAN [Suspect]
     Active Substance: CLINDAMYCIN
     Indication: OSTEITIS
     Dosage: 2400 MILLIGRAM, QD
     Route: 048
     Dates: start: 20201027, end: 20201123
  3. FLUCONAZOLE. [Suspect]
     Active Substance: FLUCONAZOLE
     Indication: OSTEITIS
     Dosage: 400 MILLIGRAM, QD
     Route: 048
     Dates: start: 20201027

REACTIONS (1)
  - Hepatic cytolysis [Recovering/Resolving]

NARRATIVE: CASE EVENT DATE: 20201116
